FAERS Safety Report 8817347 (Version 2)
Quarter: 2012Q4

REPORT INFORMATION
  Report Type: Report from Study
  Country: TH (occurrence: TH)
  Receive Date: 20121004
  Receipt Date: 20121105
  Transmission Date: 20130627
  Serious: Yes (Hospitalization)
  Sender: FDA-Public Use
  Company Number: TH-GILEAD-2012-0062224

PATIENT
  Age: 27 Year
  Sex: Male

DRUGS (6)
  1. TENOFOVIR DISOPROXIL FUMARATE [Suspect]
     Indication: HIV INFECTION
  2. EFAVIRENZ [Suspect]
     Indication: HIV INFECTION
  3. LAMIVUDINE [Suspect]
     Indication: HIV INFECTION
  4. EMTRICITABINE/TENOFOVIR DISOPROXIL FUMARATE [Suspect]
     Indication: HIV INFECTION
     Dosage: UNK
     Dates: start: 20100925, end: 20120219
  5. RALTEGRAVIR [Suspect]
     Indication: HIV INFECTION
     Dosage: UNK
     Dates: start: 20100925, end: 20110103
  6. MARAVIROC [Suspect]
     Indication: HIV INFECTION
     Dosage: UNK
     Dates: start: 20100925, end: 20110303

REACTIONS (1)
  - Electrolyte imbalance [Recovered/Resolved]
